FAERS Safety Report 22276421 (Version 1)
Quarter: 2023Q2

REPORT INFORMATION
  Report Type: Report from Study
  Country: US (occurrence: US)
  Receive Date: 20230503
  Receipt Date: 20230503
  Transmission Date: 20230721
  Serious: Yes (Hospitalization)
  Sender: FDA-Public Use
  Company Number: US-JNJFOC-20230455224

PATIENT
  Age: 62 Year
  Sex: Female

DRUGS (4)
  1. SPRAVATO [Suspect]
     Active Substance: ESKETAMINE
     Indication: Product used for unknown indication
     Dates: start: 20230404
  2. SPRAVATO [Suspect]
     Active Substance: ESKETAMINE
     Dates: start: 20230407
  3. SPRAVATO [Suspect]
     Active Substance: ESKETAMINE
     Dosage: 2 DEVICES
     Dates: start: 20230411
  4. SPRAVATO [Suspect]
     Active Substance: ESKETAMINE
     Dosage: TOTAL 1 DOSE
     Dates: start: 20230414

REACTIONS (1)
  - Hospitalisation [Unknown]

NARRATIVE: CASE EVENT DATE: 20230401
